FAERS Safety Report 4566505-8 (Version None)
Quarter: 2005Q1

REPORT INFORMATION
  Report Type: 
  Country: None (occurrence: None)
  Receive Date: 20050128
  Receipt Date: 20050114
  Transmission Date: 20050727
  Serious: Yes (Other)
  Sender: FDA-Public Use
  Company Number: 211804

PATIENT
  Age: 30 Year
  Sex: Male

DRUGS (1)
  1. RITUXAN [Suspect]
     Indication: THROMBOTIC THROMBOCYTOPENIC PURPURA
     Dosage: SINGLE, INTRAVENOUS
     Route: 042
     Dates: start: 20041231

REACTIONS (2)
  - CONDITION AGGRAVATED [None]
  - STEVENS-JOHNSON SYNDROME [None]
